FAERS Safety Report 5575964-3 (Version None)
Quarter: 2007Q4

REPORT INFORMATION
  Report Type: 
  Country: None (occurrence: None)
  Receive Date: 20071226
  Receipt Date: 20071207
  Transmission Date: 20080405
  Serious: Yes (Other)
  Sender: FDA-Public Use
  Company Number: GXKR2007GB10566

PATIENT
  Sex: Male

DRUGS (8)
  1. CODEINE PHOSPHATE (NGX)(CODEINE PHOSPHATE) UNKNOWN [Suspect]
     Dates: start: 20020820
  2. IBUPROFEN [Suspect]
  3. PAROXETINE HCL [Suspect]
     Indication: PHOBIA
     Dosage: QD,
     Dates: start: 19990901
  4. LOFEPRAMINE(LOFEPRAMINE) [Suspect]
  5. IBUPROFEN [Suspect]
     Dates: start: 20020820
  6. FLUOXETINE [Concomitant]
  7. LITHIUM CARBONATE [Concomitant]
  8. METHYLENEDIOXYAMPHETAMINE (METHYLENEDIOXYAMPHETAMINE) [Concomitant]

REACTIONS (8)
  - CONSTIPATION [None]
  - DEPRESSION [None]
  - DRUG ABUSER [None]
  - DRY MOUTH [None]
  - SEXUAL DYSFUNCTION [None]
  - SOCIAL PHOBIA [None]
  - SUICIDAL IDEATION [None]
  - VISION BLURRED [None]
